FAERS Safety Report 10058625 (Version 1)
Quarter: 2014Q2

REPORT INFORMATION
  Report Type: Report from Study
  Country: BR (occurrence: BR)
  Receive Date: 20140404
  Receipt Date: 20140404
  Transmission Date: 20141212
  Serious: Yes (Hospitalization, Other)
  Sender: FDA-Public Use
  Company Number: PHHY2014BR040124

PATIENT
  Sex: Female
  Weight: 56 kg

DRUGS (2)
  1. EXELON PATCH [Suspect]
     Indication: DEMENTIA ALZHEIMER^S TYPE
     Dosage: 9.5 MG PER DAY (10 CM2)
     Route: 062
  2. GLIFAGE [Concomitant]
     Indication: DIABETES MELLITUS
     Dosage: 2 DF PER DAY

REACTIONS (1)
  - Anaemia [Unknown]
